FAERS Safety Report 4519106-1 (Version None)
Quarter: 2004Q4

REPORT INFORMATION
  Report Type: 
  Country: None (occurrence: None)
  Receive Date: 20041201
  Receipt Date: 20041123
  Transmission Date: 20050328
  Serious: Yes (Hospitalization)
  Sender: FDA-Public Use
  Company Number: 200413241GDS

PATIENT
  Age: 59 Year
  Sex: Male

DRUGS (1)
  1. MOXIFLOXACIN HCL [Suspect]
     Indication: BRONCHITIS CHRONIC
     Dosage: 400 MG,TOTAL DAILY, ORAL
     Route: 048

REACTIONS (1)
  - CHOLELITHIASIS [None]
